FAERS Safety Report 7722729-X (Version None)
Quarter: 2011Q3

REPORT INFORMATION
  Report Type: 
  Country: None (occurrence: None)
  Receive Date: 20110831
  Receipt Date: 20110817
  Transmission Date: 20111222
  Serious: No
  Sender: FDA-Public Use
  Company Number: US-B.I. PHARMACEUTICALS,INC./RIDGEFIELD-2011-BP-12973BP

PATIENT
  Age: 93 Year
  Sex: Male

DRUGS (12)
  1. REQUIP [Concomitant]
     Indication: RESTLESS LEGS SYNDROME
     Route: 048
  2. NEURONTIN [Concomitant]
     Indication: NEUROPATHY PERIPHERAL
     Route: 048
  3. METOPROLOL TARTRATE [Concomitant]
     Indication: ATRIAL FIBRILLATION
     Dosage: 25 MG
     Route: 048
  4. FUROSEMIDE [Concomitant]
     Indication: ATRIAL FIBRILLATION
     Dosage: 40 MG
     Route: 048
  5. DIGOXIN [Concomitant]
     Indication: ATRIAL FIBRILLATION
     Route: 048
  6. PRADAXA [Suspect]
     Indication: ATRIAL FIBRILLATION
     Dosage: 300 MG
     Route: 048
     Dates: start: 20110327, end: 20110505
  7. POTASSIUM [Concomitant]
     Indication: SUPPLEMENTATION THERAPY
     Route: 048
  8. ADVAIR DISKUS 100/50 [Concomitant]
     Indication: CHRONIC OBSTRUCTIVE PULMONARY DISEASE
  9. LUPRON [Concomitant]
     Indication: PROSTATE CANCER
  10. PRADAXA [Suspect]
     Dosage: 300 MG
     Route: 048
  11. NEURONTIN [Concomitant]
     Indication: RESTLESS LEGS SYNDROME
  12. POTASSIUM [Concomitant]
     Indication: ATRIAL FIBRILLATION

REACTIONS (3)
  - CONTUSION [None]
  - PHARYNGEAL OEDEMA [None]
  - DYSPHAGIA [None]
